FAERS Safety Report 4371725-1 (Version None)
Quarter: 2004Q2

REPORT INFORMATION
  Report Type: 
  Country: None (occurrence: None)
  Receive Date: 20040602
  Receipt Date: 20040518
  Transmission Date: 20050107
  Serious: Yes (Hospitalization)
  Sender: FDA-Public Use
  Company Number: 2004215435IE

PATIENT
  Age: 51 Year
  Sex: Female

DRUGS (1)
  1. AROMASIN [Suspect]
     Indication: BREAST CANCER
     Dosage: UNK
     Dates: start: 20021001

REACTIONS (5)
  - ANXIETY [None]
  - ARTHRALGIA [None]
  - ASEPTIC NECROSIS BONE [None]
  - FALL [None]
  - GROIN PAIN [None]
